FAERS Safety Report 8515686-X (Version None)
Quarter: 2012Q3

REPORT INFORMATION
  Report Type: 
  Country: None (occurrence: None)
  Receive Date: 20120717
  Receipt Date: 20120713
  Transmission Date: 20120928
  Serious: Yes (Other)
  Sender: FDA-Public Use
  Company Number: PHHY2012BR060750

PATIENT
  Sex: Male

DRUGS (2)
  1. TRILEPTAL [Suspect]
  2. TEGRETOL [Suspect]

REACTIONS (1)
  - EPILEPSY [None]
